FAERS Safety Report 21286930 (Version 2)
Quarter: 2022Q3

REPORT INFORMATION
  Report Type: Spontaneous
  Country: JP (occurrence: JP)
  Receive Date: 20220902
  Receipt Date: 20220909
  Transmission Date: 20221027
  Serious: Yes (Hospitalization, Other)
  Sender: FDA-Public Use
  Company Number: JP-DSJP-DSJ-2022-131529

PATIENT
  Age: 58 Year
  Sex: Male
  Weight: 79.1 kg

DRUGS (6)
  1. EDOXABAN TOSYLATE [Suspect]
     Active Substance: EDOXABAN TOSYLATE
     Indication: Atrial fibrillation
     Dosage: 60MG/DAY
     Route: 065
  2. EDOXABAN TOSYLATE [Suspect]
     Active Substance: EDOXABAN TOSYLATE
     Dosage: 30MG/DAY
     Route: 065
  3. EDOXABAN TOSYLATE [Suspect]
     Active Substance: EDOXABAN TOSYLATE
     Dosage: 60MG/DAY
     Route: 065
  4. CARPERITIDE [Suspect]
     Active Substance: CARPERITIDE
     Indication: Dysuria
     Dosage: UNK
     Route: 065
  5. FUROSEMIDE [Suspect]
     Active Substance: FUROSEMIDE
     Dosage: UNK
     Route: 065
  6. BISOPROLOL FUMARATE [Concomitant]
     Active Substance: BISOPROLOL FUMARATE
     Indication: Heart rate abnormal
     Dosage: UNK
     Route: 065

REACTIONS (2)
  - Renal impairment [Recovering/Resolving]
  - Cardiac failure [Recovering/Resolving]
